FAERS Safety Report 23694833 (Version 1)
Quarter: 2024Q2

REPORT INFORMATION
  Report Type: Spontaneous
  Country: US (occurrence: US)
  Receive Date: 20240402
  Receipt Date: 20240402
  Transmission Date: 20240716
  Serious: No
  Sender: FDA-Public Use
  Company Number: US-HALEON-USCH2024AMR015956

PATIENT
  Age: 56 Year
  Sex: Female
  Weight: 81.556 kg

DRUGS (1)
  1. SIMETHICONE (DIMETHICONE) [Suspect]
     Active Substance: DIMETHICONE
     Indication: Abdominal distension
     Route: 065
     Dates: start: 20240309, end: 20240310

REACTIONS (1)
  - Drug ineffective [Unknown]
